FAERS Safety Report 9748911 (Version 2)
Quarter: 2013Q4

REPORT INFORMATION
  Report Type: Spontaneous
  Country: US (occurrence: US)
  Receive Date: 20131212
  Receipt Date: 20131212
  Transmission Date: 20140711
  Serious: No
  Sender: FDA-Public Use
  Company Number: US-INCYTE CORPORATION-2013IN001959

PATIENT
  Age: 87 Year
  Sex: Male

DRUGS (7)
  1. JAKAFI [Suspect]
     Indication: MYELOFIBROSIS
     Dosage: 20 MG, QD
     Route: 048
     Dates: start: 20130624
  2. SYNTHROID [Concomitant]
     Dosage: 100 MCG, UNK
  3. PROVENTIL HFA [Concomitant]
     Dosage: 90 MCG, UNK
  4. ANAGRELIDE HYDROCHLORIDE [Concomitant]
     Dosage: 0.5 MG, UNK
  5. ADVAIR [Concomitant]
     Dosage: 100-50, UNK
  6. HYDROXYUREA [Concomitant]
     Dosage: 500 MG, UNK
  7. FOLIC ACID [Concomitant]
     Dosage: 0.4 MG, UNK

REACTIONS (4)
  - Abnormal dreams [Unknown]
  - Dyssomnia [Unknown]
  - Dizziness [Unknown]
  - Anaemia [Unknown]
